FAERS Safety Report 8710282 (Version 2)
Quarter: 2012Q4

REPORT INFORMATION
  Report Type: 
  Country: US (occurrence: US)
  Receive Date: 20120807
  Receipt Date: 20120906
  Transmission Date: 20130627
  Serious: Yes (Hospitalization)
  Sender: FDA-Public Use
  Company Number: US-BIOGENIDEC-2012BI028628

PATIENT
  Age: 29 Year
  Sex: Female

DRUGS (25)
  1. TYSABRI [Suspect]
     Indication: MULTIPLE SCLEROSIS
     Route: 042
     Dates: start: 20120217
  2. AVONEX [Concomitant]
     Indication: MULTIPLE SCLEROSIS
     Route: 030
     Dates: start: 20110806
  3. SIMVASTATIN [Concomitant]
     Indication: HYPERLIPIDAEMIA
  4. NOVOLOG [Concomitant]
     Indication: DIABETES MELLITUS
  5. LANTUS [Concomitant]
     Indication: DIABETES MELLITUS
  6. LYRICA [Concomitant]
     Indication: NEUROPATHY PERIPHERAL
  7. GABAPENTIN [Concomitant]
     Indication: NEUROPATHY PERIPHERAL
  8. TRILEPTAL [Concomitant]
     Indication: NEUROPATHY PERIPHERAL
  9. OMEPRAZOLE [Concomitant]
     Indication: GASTROOESOPHAGEAL REFLUX DISEASE
  10. CYMBALTA [Concomitant]
     Indication: DEPRESSION
  11. CYMBALTA [Concomitant]
     Indication: NEUROPATHY PERIPHERAL
  12. CLONAZEPAM [Concomitant]
     Indication: ANXIETY
  13. OXYCODONE [Concomitant]
     Indication: PAIN
  14. CLARITIN [Concomitant]
     Indication: MULTIPLE ALLERGIES
  15. IBUPROFEN [Concomitant]
     Indication: PAIN
  16. BENEFIBER [Concomitant]
     Indication: CONSTIPATION
  17. ARMODAFINIL [Concomitant]
     Indication: FATIGUE
  18. CYCLOBENZAPRINE [Concomitant]
     Indication: MUSCLE SPASMS
  19. VALSARTAN [Concomitant]
     Indication: HYPERTENSION
  20. HCTZ [Concomitant]
     Indication: HYPERTENSION
  21. SENNA [Concomitant]
     Indication: CONSTIPATION
  22. TRAMADOL [Concomitant]
     Indication: PAIN
  23. ABILIFY [Concomitant]
     Indication: ANXIETY
  24. COLACE [Concomitant]
     Indication: CONSTIPATION
  25. GABAPENTIN [Concomitant]
     Indication: NEUROPATHY PERIPHERAL

REACTIONS (6)
  - Deep vein thrombosis [Unknown]
  - Pulmonary embolism [Recovered/Resolved]
  - Asthenia [Unknown]
  - Mental status changes [Not Recovered/Not Resolved]
  - Urinary tract infection [Not Recovered/Not Resolved]
  - Diabetic ketoacidosis [Unknown]
